FAERS Safety Report 10286577 (Version 2)
Quarter: 2014Q3

REPORT INFORMATION
  Report Type: Spontaneous
  Country: NL (occurrence: None)
  Receive Date: 20140707
  Receipt Date: 20140716
  Transmission Date: 20150326
  Serious: Yes (Death, Other)
  Sender: FDA-Public Use
  Company Number: AXC-2014-000405

PATIENT
  Age: 78 Year
  Sex: Male
  Weight: 72 kg

DRUGS (17)
  1. SALMETEROL [Concomitant]
     Active Substance: SALMETEROL
  2. BROMAZEPAM (BROMAZEPAM) [Concomitant]
     Active Substance: BROMAZEPAM
  3. MOLAXONE [Concomitant]
  4. ACENOCOUMAROL [Suspect]
     Active Substance: ACENOCOUMAROL
     Indication: ATRIAL FIBRILLATION
     Dates: start: 2014
  5. PANTOPRAZOLE (PANTOPRAZOLE) [Concomitant]
     Active Substance: PANTOPRAZOLE SODIUM
  6. PAROXETINE (PAROXETINE) [Concomitant]
     Active Substance: PAROXETINE HYDROCHLORIDE
  7. COLECALCIFEROL [Concomitant]
     Active Substance: CHOLECALCIFEROL
  8. SPIRONOLACTONE (SPIRONOLACTONE) [Concomitant]
     Active Substance: SPIRONOLACTONE
  9. SUCRALFATE. [Suspect]
     Active Substance: SUCRALFATE
     Indication: GASTROOESOPHAGEAL REFLUX DISEASE
     Dosage: 1-2 TABS/DAY.
     Dates: start: 2013
  10. SERETIDE [Concomitant]
     Active Substance: FLUTICASONE FUROATE\SALMETEROL XINAFOATE
  11. PARACETAMOL (PARACETAMOL) [Concomitant]
     Active Substance: ACETAMINOPHEN
  12. RISPERIDONE (RISPERIDONE) [Concomitant]
     Active Substance: RISPERIDONE
  13. ATROVENT [Concomitant]
     Active Substance: IPRATROPIUM BROMIDE
  14. MACROGOL [Concomitant]
     Active Substance: POLYETHYLENE GLYCOLS
  15. TRAMADOL (TRAMADOL) [Concomitant]
     Active Substance: TRAMADOL
  16. EMSELEX [Concomitant]
     Active Substance: DARIFENACIN HYDROBROMIDE
  17. AKINETON [Concomitant]
     Active Substance: BIPERIDEN HYDROCHLORIDE

REACTIONS (5)
  - Drug interaction [None]
  - Pneumonia [None]
  - Off label use [None]
  - Cerebrovascular accident [None]
  - International normalised ratio increased [None]

NARRATIVE: CASE EVENT DATE: 20140428
